FAERS Safety Report 6190628-3 (Version None)
Quarter: 2009Q2

REPORT INFORMATION
  Report Type: 
  Country: None (occurrence: None)
  Receive Date: 20090514
  Receipt Date: 20090407
  Transmission Date: 20091009
  Serious: No
  Sender: FDA-Public Use
  Company Number: US-BRISTOL-MYERS SQUIBB COMPANY-14577415

PATIENT
  Age: 67 Year
  Sex: Female
  Weight: 62 kg

DRUGS (9)
  1. IXEMPRA KIT [Suspect]
     Indication: BREAST CANCER METASTATIC
  2. EMEND [Concomitant]
  3. PROCRIT [Concomitant]
  4. ZOMETA [Concomitant]
  5. PREVACID [Concomitant]
  6. REGLAN [Concomitant]
  7. DIGOXIN [Concomitant]
  8. LIPITOR [Concomitant]
  9. TIGAN [Concomitant]

REACTIONS (1)
  - NAIL DISORDER [None]
